FAERS Safety Report 19053872 (Version 1)
Quarter: 2021Q1

REPORT INFORMATION
  Report Type: Spontaneous
  Country: GB (occurrence: GB)
  Receive Date: 20210324
  Receipt Date: 20210324
  Transmission Date: 20210420
  Serious: Yes (Disabling, Other)
  Sender: FDA-Public Use
  Company Number: GB-TAKEDA-2021TEU002856

PATIENT
  Age: 72 Year
  Sex: Male
  Weight: 110 kg

DRUGS (7)
  1. ALOGLIPTIN. [Suspect]
     Active Substance: ALOGLIPTIN
     Indication: PRODUCT USED FOR UNKNOWN INDICATION
     Dosage: 6.25 MILLIGRAM, QD
     Route: 065
     Dates: start: 20210211, end: 20210311
  2. BENDROFLUMETHIAZIDE [Concomitant]
     Active Substance: BENDROFLUMETHIAZIDE
     Dosage: UNK UNK, QD
     Dates: start: 20200423
  3. DAKTACORT [Concomitant]
     Active Substance: HYDROCORTISONE\MICONAZOLE NITRATE
     Dosage: UNK UNK, BID
     Dates: start: 20210211, end: 20210311
  4. METFORMIN [Concomitant]
     Active Substance: METFORMIN HYDROCHLORIDE
     Dosage: UNK UNK, BID
     Dates: start: 20200423
  5. TERBINAFINE. [Concomitant]
     Active Substance: TERBINAFINE
     Dosage: UNK UNK, QD
     Dates: start: 20210308
  6. AMLODIPINE [Concomitant]
     Active Substance: AMLODIPINE BESYLATE
     Dosage: UNK UNK, QD
     Dates: start: 20200423
  7. ATORVASTATIN [Concomitant]
     Active Substance: ATORVASTATIN
     Indication: BLOOD CHOLESTEROL INCREASED
     Dosage: UNK UNK, QD
     Dates: start: 20200423

REACTIONS (1)
  - Micturition urgency [Recovered/Resolved]

NARRATIVE: CASE EVENT DATE: 20210308
